FAERS Safety Report 16476907 (Version 1)
Quarter: 2019Q2

REPORT INFORMATION
  Report Type: Spontaneous
  Country: CA (occurrence: CA)
  Receive Date: 20190626
  Receipt Date: 20190626
  Transmission Date: 20190711
  Serious: Yes (Life-Threatening, Hospitalization, Other)
  Sender: FDA-Public Use
  Company Number: CA-AUROBINDO-AUR-APL-2019-035439

PATIENT

DRUGS (5)
  1. VENLAFAXINE [Concomitant]
     Active Substance: VENLAFAXINE HYDROCHLORIDE
     Indication: PRODUCT USED FOR UNKNOWN INDICATION
     Dosage: UNK
     Route: 065
  2. IRBESARTAN TABLETS [Suspect]
     Active Substance: IRBESARTAN
     Indication: HYPERTENSION
  3. IRBESARTAN TABLETS [Suspect]
     Active Substance: IRBESARTAN
     Indication: PROTEINURIA
     Dosage: 75 MILLIGRAM, ONCE A DAY
     Route: 048
  4. IRBESARTAN TABLETS [Suspect]
     Active Substance: IRBESARTAN
     Indication: CHRONIC KIDNEY DISEASE
  5. BETAHISTINE [Concomitant]
     Active Substance: BETAHISTINE
     Indication: PRODUCT USED FOR UNKNOWN INDICATION
     Dosage: UNK
     Route: 065

REACTIONS (17)
  - Abdominal pain [Recovered/Resolved]
  - Rash [Recovered/Resolved]
  - Fatigue [Recovered/Resolved]
  - Hypervolaemia [Recovered/Resolved]
  - Weight decreased [Recovered/Resolved]
  - Pyelonephritis [Recovered/Resolved]
  - Back pain [Recovered/Resolved]
  - Hypoperfusion [Recovered/Resolved]
  - Myalgia [Recovered/Resolved]
  - Vomiting [Recovered/Resolved]
  - Bacterial sepsis [Recovered/Resolved]
  - Diarrhoea [Recovered/Resolved]
  - End stage renal disease [Recovered/Resolved]
  - Frequent bowel movements [Recovered/Resolved]
  - Hypotension [Recovered/Resolved]
  - Pyrexia [Recovered/Resolved]
  - White blood cell count increased [Recovered/Resolved]
